FAERS Safety Report 20720883 (Version 1)
Quarter: 2022Q2

REPORT INFORMATION
  Report Type: Spontaneous
  Country: US (occurrence: US)
  Receive Date: 20220418
  Receipt Date: 20220418
  Transmission Date: 20220720
  Serious: Yes (Other)
  Sender: FDA-Public Use
  Company Number: US-HQ SPECIALTY-US-2022INT000102

PATIENT
  Sex: Male
  Weight: 86.168 kg

DRUGS (3)
  1. CISPLATIN [Suspect]
     Active Substance: CISPLATIN
     Indication: Lung neoplasm malignant
     Dosage: UNK, ONCE A WEEK FOR SEVEN WEEKS
     Route: 065
     Dates: start: 201208
  2. TAXOL [Suspect]
     Active Substance: PACLITAXEL
     Indication: Lung neoplasm malignant
     Dosage: UNK, ONCE A WEEK FOR SEVEN WEEKS
     Route: 065
     Dates: start: 201208
  3. RADIATION THERAPY [Suspect]
     Active Substance: RADIATION THERAPY
     Indication: Lung neoplasm malignant
     Dosage: UNK, DAILY
     Route: 065
     Dates: start: 2012

REACTIONS (3)
  - Vertigo [Not Recovered/Not Resolved]
  - Deafness [Not Recovered/Not Resolved]
  - Tinnitus [Not Recovered/Not Resolved]
